FAERS Safety Report 20055454 (Version 4)
Quarter: 2022Q2

REPORT INFORMATION
  Report Type: Spontaneous
  Country: US (occurrence: US)
  Receive Date: 20211110
  Receipt Date: 20220413
  Transmission Date: 20220721
  Serious: No
  Sender: FDA-Public Use
  Company Number: US-Blueprint Medicines Corporation-SP-US-2021-002076

PATIENT
  Sex: Male
  Weight: 88.530 kg

DRUGS (31)
  1. AYVAKIT [Suspect]
     Active Substance: AVAPRITINIB
     Indication: Systemic mastocytosis
     Route: 048
     Dates: start: 20211026
  2. AYVAKIT [Suspect]
     Active Substance: AVAPRITINIB
     Route: 048
  3. AYVAKIT [Suspect]
     Active Substance: AVAPRITINIB
     Route: 048
     Dates: start: 20211025
  4. VITAMIN D AND K [Concomitant]
     Indication: Routine health maintenance
     Route: 048
     Dates: start: 2017, end: 20201001
  5. VITAMIN B12 [Concomitant]
     Active Substance: CYANOCOBALAMIN
     Indication: Routine health maintenance
     Route: 048
     Dates: start: 202005, end: 20201001
  6. FLUZONE [Concomitant]
     Active Substance: INFLUENZA A VIRUS A/CALIFORNIA/7/2009 X-179A (H1N1) ANTIGEN (FORMALDEHYDE INACTIVATED)\INFLUENZA A V
     Indication: Prophylaxis
     Dates: start: 202009, end: 202009
  7. PROBIOTICS NOS [Concomitant]
     Active Substance: PROBIOTICS NOS
     Indication: Routine health maintenance
     Route: 048
     Dates: start: 202005, end: 20201001
  8. ATIVAN [Concomitant]
     Active Substance: LORAZEPAM
     Indication: Anxiety
     Route: 048
     Dates: start: 2013
  9. VITAMINS [Concomitant]
     Active Substance: VITAMINS
     Indication: Routine health maintenance
     Dosage: 1 GUMMY
     Route: 048
     Dates: start: 2010
  10. OXYCODONE [Concomitant]
     Active Substance: OXYCODONE
     Indication: Pain in extremity
     Route: 048
     Dates: start: 2013
  11. OXYCODONE [Concomitant]
     Active Substance: OXYCODONE
     Indication: Abdominal pain lower
     Route: 048
     Dates: start: 20170403
  12. PROTONIX [Concomitant]
     Active Substance: PANTOPRAZOLE SODIUM
     Indication: Gastrooesophageal reflux disease
     Route: 048
     Dates: start: 2005, end: 20201001
  13. SODIUM CARBONATE [Concomitant]
     Active Substance: SODIUM CARBONATE
     Indication: Gastrooesophageal reflux disease
     Route: 048
     Dates: start: 2018
  14. HYDROCORTISONE [Concomitant]
     Active Substance: HYDROCORTISONE
     Indication: Dermatitis acneiform
     Route: 061
     Dates: start: 202009
  15. IRBESARTAN [Concomitant]
     Active Substance: IRBESARTAN
     Indication: Hypertension
     Route: 048
     Dates: start: 2005
  16. FAMOTIDINE [Concomitant]
     Active Substance: FAMOTIDINE
     Indication: Gastrooesophageal reflux disease
     Route: 048
     Dates: start: 20201005
  17. TUMS [Concomitant]
     Active Substance: CALCIUM CARBONATE
     Indication: Gastrooesophageal reflux disease
     Route: 048
     Dates: start: 20201005
  18. MIRALAX [Concomitant]
     Active Substance: POLYETHYLENE GLYCOL 3350
     Indication: Constipation
     Route: 048
     Dates: start: 20201005
  19. SENNAKOT [Concomitant]
     Indication: Constipation
     Route: 048
     Dates: start: 20201008
  20. AMLODIPINE [Concomitant]
     Active Substance: AMLODIPINE BESYLATE
     Indication: Hypertension
     Route: 048
     Dates: start: 20201103
  21. NITROGEN [Concomitant]
     Active Substance: NITROGEN
     Indication: Seborrhoeic keratosis
     Route: 065
     Dates: start: 20201105, end: 20201105
  22. NITROGEN [Concomitant]
     Active Substance: NITROGEN
     Route: 065
     Dates: start: 20210120, end: 20210120
  23. CLOBETASOL [Concomitant]
     Active Substance: CLOBETASOL
     Indication: Folliculitis
     Route: 061
     Dates: start: 20201105
  24. CLOBETASOL [Concomitant]
     Active Substance: CLOBETASOL
     Indication: Eczema
  25. CLOBETASOL [Concomitant]
     Active Substance: CLOBETASOL
     Indication: Folliculitis
  26. ALLEGRA [Concomitant]
     Active Substance: FEXOFENADINE HYDROCHLORIDE
     Indication: Folliculitis
     Route: 048
     Dates: start: 20201117
  27. COVID-19 VACCINE [Concomitant]
     Indication: COVID-19 immunisation
     Dates: start: 20210213, end: 20210213
  28. COVID-19 VACCINE [Concomitant]
     Dates: start: 20210306, end: 20210306
  29. BETAMETHASONE DIPROPIONATE [Concomitant]
     Active Substance: BETAMETHASONE DIPROPIONATE
     Indication: Product used for unknown indication
     Route: 061
     Dates: start: 20201106
  30. SINGULAIR [Concomitant]
     Active Substance: MONTELUKAST SODIUM
     Indication: Product used for unknown indication
     Route: 048
     Dates: start: 20210824
  31. ZOFRAN [Concomitant]
     Active Substance: ONDANSETRON HYDROCHLORIDE
     Indication: Nausea
     Route: 048

REACTIONS (3)
  - Periorbital oedema [Unknown]
  - Swelling face [Not Recovered/Not Resolved]
  - Peripheral swelling [Not Recovered/Not Resolved]
